FAERS Safety Report 5588867-5 (Version None)
Quarter: 2008Q1

REPORT INFORMATION
  Report Type: 
  Country: None (occurrence: None)
  Receive Date: 20080111
  Receipt Date: 20080102
  Transmission Date: 20080703
  Serious: Yes (Other)
  Sender: FDA-Public Use
  Company Number: US-PFIZER INC-2008001169

PATIENT
  Sex: Male
  Weight: 83.9 kg

DRUGS (11)
  1. ZOLOFT [Suspect]
     Indication: DEPRESSION
  2. ZOLOFT [Suspect]
     Indication: INSOMNIA
  3. LISINOPRIL [Concomitant]
     Indication: CARDIAC DISORDER
  4. LASIX [Concomitant]
     Indication: CARDIAC DISORDER
  5. DIGOXIN [Concomitant]
     Indication: CARDIAC DISORDER
  6. TERAZOSIN HCL [Concomitant]
     Indication: CARDIAC DISORDER
  7. METHYLPREDNISOLONE [Concomitant]
  8. ADVAIR DISKUS 100/50 [Concomitant]
     Indication: ASTHMA
  9. PLAVIX [Concomitant]
  10. ACETYLSALICYLIC ACID SRT [Concomitant]
  11. SAW PALMETTO [Concomitant]

REACTIONS (3)
  - HIP ARTHROPLASTY [None]
  - INCORRECT DOSE ADMINISTERED [None]
  - SOMNOLENCE [None]
